FAERS Safety Report 4377399-8 (Version None)
Quarter: 2004Q2

REPORT INFORMATION
  Report Type: 
  Country: None (occurrence: None)
  Receive Date: 20040609
  Receipt Date: 20040428
  Transmission Date: 20050107
  Serious: No
  Sender: FDA-Public Use
  Company Number: 2004211365US

PATIENT
  Age: 70 Year
  Sex: Female

DRUGS (7)
  1. BEXTRA [Suspect]
     Indication: ARTHRALGIA
     Dosage: 10 MG, QD
     Dates: start: 20040421
  2. AMITRIPTLYINE [Concomitant]
  3. ^COTIZINE^ [Concomitant]
  4. GLUCOPHAGE [Concomitant]
  5. HYDROCODONE [Concomitant]
  6. ^NERVONSIN^ [Concomitant]
  7. ZOLOFT [Concomitant]

REACTIONS (1)
  - BUCCAL MUCOSAL ROUGHENING [None]
